FAERS Safety Report 16720208 (Version 1)
Quarter: 2019Q3

REPORT INFORMATION
  Report Type: Spontaneous
  Country: FR (occurrence: FR)
  Receive Date: 20190820
  Receipt Date: 20190820
  Transmission Date: 20191005
  Serious: Yes (Death)
  Sender: FDA-Public Use
  Company Number: FR-PROVELL PHARMACEUTICALS-2073367

PATIENT
  Age: 71 Year
  Sex: Female
  Weight: 76 kg

DRUGS (3)
  1. EUTHYROX [Suspect]
     Active Substance: LEVOTHYROXINE SODIUM
     Indication: HYPOTHYROIDISM
     Route: 048
     Dates: start: 2018, end: 20190723
  2. ENASIDENIB [Suspect]
     Active Substance: ENASIDENIB
     Route: 048
     Dates: start: 20190613, end: 20190722
  3. ARACYTINE [Suspect]
     Active Substance: CYTARABINE
     Route: 041
     Dates: start: 20190507, end: 20190510

REACTIONS (2)
  - Sepsis [Fatal]
  - Arthritis bacterial [Fatal]

NARRATIVE: CASE EVENT DATE: 201907
